FAERS Safety Report 8954770 (Version 1)
Quarter: 2012Q4

REPORT INFORMATION
  Report Type: 
  Country: BR (occurrence: BR)
  Receive Date: 20121210
  Receipt Date: 20121210
  Transmission Date: 20130627
  Serious: Yes (Death)
  Sender: FDA-Public Use
  Company Number: PHHY2009BR55174

PATIENT
  Sex: Female
  Weight: 53 kg

DRUGS (6)
  1. EXELON PATCH [Suspect]
     Indication: DEMENTIA ALZHEIMER^S TYPE
     Dosage: 1 DF/ 24 hours
     Route: 062
     Dates: start: 2008
  2. EXELON PATCH [Suspect]
     Dosage: 2 DF/ 24 hours
     Route: 062
     Dates: start: 200908
  3. EXELON PATCH [Suspect]
     Dosage: 9.5 mg, daily
     Route: 062
     Dates: end: 20121109
  4. EXELON [Suspect]
     Indication: DEMENTIA ALZHEIMER^S TYPE
     Dosage: 4.5 mg, (4.5 mg once per day)
     Route: 048
  5. EXELON [Suspect]
     Dosage: 4.5 mg, BID (4.5 mg 1 capsule twice a day)
     Route: 048
  6. EXELON [Suspect]
     Dosage: 6 mg, BID (6 mg 1 capsule twice per day)
     Route: 048

REACTIONS (2)
  - Death [Fatal]
  - Wrong technique in drug usage process [Unknown]
